FAERS Safety Report 15347704 (Version 1)
Quarter: 2018Q3

REPORT INFORMATION
  Report Type: Spontaneous
  Country: SE (occurrence: SE)
  Receive Date: 20180904
  Receipt Date: 20180904
  Transmission Date: 20181010
  Serious: Yes (Other)
  Sender: FDA-Public Use
  Company Number: SE-TEVA-2018-SE-949094

PATIENT
  Sex: Female

DRUGS (1)
  1. PROGLYCEM [Suspect]
     Active Substance: DIAZOXIDE
     Indication: HYPOGLYCAEMIA
     Route: 065
     Dates: end: 20171221

REACTIONS (7)
  - Oedema [Unknown]
  - Tachycardia [Unknown]
  - Dysphagia [Unknown]
  - Anaemia [Unknown]
  - Respiratory depression [Unknown]
  - Sepsis [Unknown]
  - Gastrooesophageal reflux disease [Unknown]
